FAERS Safety Report 23261268 (Version 1)
Quarter: 2023Q4

REPORT INFORMATION
  Report Type: Spontaneous
  Country: US (occurrence: US)
  Receive Date: 20231205
  Receipt Date: 20231205
  Transmission Date: 20240109
  Serious: Yes (Hospitalization)
  Sender: FDA-Public Use
  Company Number: US-BEH-2023165777

PATIENT
  Age: 28 Year
  Sex: Male

DRUGS (2)
  1. RIASTAP [Suspect]
     Active Substance: FIBRINOGEN HUMAN
     Indication: Factor I deficiency
     Dosage: 2 VIALS, QOW
     Route: 065
  2. RIASTAP [Suspect]
     Active Substance: FIBRINOGEN HUMAN
     Indication: Prophylaxis

REACTIONS (3)
  - Acute leukaemia [Unknown]
  - No adverse event [Unknown]
  - Incorrect dose administered [Unknown]
